FAERS Safety Report 7746904-3 (Version None)
Quarter: 2011Q3

REPORT INFORMATION
  Report Type: 
  Country: None (occurrence: None)
  Receive Date: 20110913
  Receipt Date: 20110906
  Transmission Date: 20111222
  Serious: Yes (Other)
  Sender: FDA-Public Use
  Company Number: CN-ASTRAZENECA-2011SE53196

PATIENT

DRUGS (4)
  1. FENTANYL [Suspect]
     Indication: ANAESTHESIA
     Route: 053
  2. MIDAZOLAM HCL [Suspect]
     Indication: ANAESTHESIA
     Route: 053
  3. SODIUM CHLORIDE [Concomitant]
  4. LIDOCAINE [Suspect]
     Indication: ANAESTHESIA
     Route: 053

REACTIONS (1)
  - HORNER'S SYNDROME [None]
